FAERS Safety Report 9851063 (Version 2)
Quarter: 2014Q1

REPORT INFORMATION
  Report Type: Spontaneous
  Country: US (occurrence: US)
  Receive Date: 20140128
  Receipt Date: 20140128
  Transmission Date: 20141002
  Serious: No
  Sender: FDA-Public Use
  Company Number: US-DYAX CORP.-2012DX000256

PATIENT
  Sex: 0

DRUGS (6)
  1. KALBITOR [Suspect]
     Indication: PRODUCT USED FOR UNKNOWN INDICATION
  2. KALBITOR [Suspect]
     Route: 023
  3. KALBITOR [Suspect]
     Route: 058
  4. KALBITOR [Suspect]
     Route: 058
  5. BERINERT [Concomitant]
     Indication: PRODUCT USED FOR UNKNOWN INDICATION
  6. FIRAZYR [Concomitant]
     Indication: PRODUCT USED FOR UNKNOWN INDICATION

REACTIONS (4)
  - Erythema [Unknown]
  - Rash [Unknown]
  - Pruritus [Unknown]
  - Off label use [Unknown]
